FAERS Safety Report 8187756-X (Version None)
Quarter: 2012Q1

REPORT INFORMATION
  Report Type: 
  Country: None (occurrence: None)
  Receive Date: 20120302
  Receipt Date: 20120215
  Transmission Date: 20120608
  Serious: No
  Sender: FDA-Public Use
  Company Number: OPER20120102

PATIENT
  Age: 47 Year
  Sex: Female

DRUGS (2)
  1. OPANA ER [Suspect]
     Indication: PAIN
     Dosage: 160 MG, 4 IN 1 D, ORAL
     Route: 046
     Dates: start: 20111101
  2. OXYCODONE (OXYCODONE)(30 MILLIGRAM, TABLETS)(OXYCODONE) [Concomitant]

REACTIONS (4)
  - IMPAIRED DRIVING ABILITY [None]
  - PAIN [None]
  - IMPAIRED WORK ABILITY [None]
  - LAZINESS [None]
